FAERS Safety Report 6247719-8 (Version None)
Quarter: 2009Q2

REPORT INFORMATION
  Report Type: 
  Country: None (occurrence: None)
  Receive Date: 20090626
  Receipt Date: 20090616
  Transmission Date: 20091009
  Serious: Yes (Hospitalization)
  Sender: FDA-Public Use
  Company Number: PHHY2009JP15385

PATIENT
  Sex: Male
  Weight: 68 kg

DRUGS (17)
  1. ZOMETA [Suspect]
     Indication: MULTIPLE MYELOMA
     Dosage: 4 MG EVERY 4 WEEKS
     Route: 042
     Dates: start: 20080107, end: 20090107
  2. WARFARIN SODIUM [Concomitant]
     Indication: ATRIAL FIBRILLATION
     Dosage: UNK
     Route: 048
     Dates: start: 20071129
  3. DIGOSIN [Concomitant]
     Indication: CARDIAC FAILURE
     Dosage: UNK
     Route: 048
     Dates: start: 20080228
  4. ALDACTONE [Concomitant]
     Indication: CARDIAC FAILURE
     Dosage: UNK
     Route: 048
     Dates: start: 20080115
  5. FUROSEMIDE INTENSOL [Concomitant]
     Indication: CARDIAC FAILURE
     Dosage: UNK
     Route: 048
     Dates: start: 20080216
  6. LONGES [Concomitant]
     Indication: CARDIAC FAILURE
     Dosage: UNK
     Route: 048
     Dates: start: 20080216
  7. BIO THREE [Concomitant]
     Indication: ENTEROCOLITIS
     Dosage: UNK
     Route: 048
     Dates: start: 20080709
  8. LENDORMIN [Concomitant]
     Indication: INSOMNIA
     Dosage: UNK
     Route: 048
     Dates: start: 20080709
  9. CRAVIT [Concomitant]
     Indication: GINGIVITIS
     Dosage: UNK
     Route: 048
     Dates: start: 20081122
  10. LOXONIN [Concomitant]
     Indication: GINGIVITIS
     Dosage: UNK
     Route: 048
     Dates: start: 20090311, end: 20090318
  11. ISODINE [Concomitant]
     Indication: GINGIVITIS
     Dosage: UNK
     Route: 048
     Dates: start: 20090311, end: 20090315
  12. CLARITHROMYCIN [Concomitant]
     Indication: GINGIVITIS
     Dosage: UNK
     Route: 048
     Dates: start: 20090311
  13. SAWACILLIN [Concomitant]
     Indication: GINGIVITIS
     Dosage: UNK
     Route: 048
     Dates: start: 20090316, end: 20090331
  14. DEXTROSE 5% [Concomitant]
     Indication: MULTIPLE MYELOMA
     Dosage: UNK
     Route: 041
     Dates: start: 20080820, end: 20090422
  15. DEXAMETHASONE SODIUM PHOSPHATE [Concomitant]
     Indication: MULTIPLE MYELOMA
     Dosage: UNK
     Route: 041
     Dates: start: 20080820, end: 20090422
  16. VELCADE [Concomitant]
     Indication: MULTIPLE MYELOMA
     Dosage: UNK
     Route: 042
     Dates: start: 20080820, end: 20090422
  17. ISOTONIC SOLUTIONS [Concomitant]
     Indication: MULTIPLE MYELOMA
     Dosage: UNK
     Route: 042
     Dates: start: 20080820, end: 20090422

REACTIONS (7)
  - BONE OPERATION [None]
  - DENTURE WEARER [None]
  - OSTEOMYELITIS [None]
  - OSTEONECROSIS [None]
  - PAIN IN JAW [None]
  - PRIMARY SEQUESTRUM [None]
  - SEQUESTRECTOMY [None]
